FAERS Safety Report 18991187 (Version 2)
Quarter: 2021Q1

REPORT INFORMATION
  Report Type: Report from Study
  Country: NO (occurrence: NO)
  Receive Date: 20210310
  Receipt Date: 20210312
  Transmission Date: 20210420
  Serious: Yes (Death)
  Sender: FDA-Public Use
  Company Number: NO-PFIZER INC-2021247311

PATIENT

DRUGS (1)
  1. FRAGMIN [Suspect]
     Active Substance: DALTEPARIN SODIUM
     Indication: PROPHYLAXIS
     Dosage: 5000 IU, SINGLE (SINGLE DOSE OF DALTEPARIN, GIVEN IN THE EVENING AS SUBCUTANEOUS (S.C.) INJECTION)
     Route: 058

REACTIONS (3)
  - Pneumonia [Fatal]
  - Confusional state [Fatal]
  - Subdural haematoma [Fatal]
